FAERS Safety Report 6209636-9 (Version None)
Quarter: 2009Q2

REPORT INFORMATION
  Report Type: 
  Country: None (occurrence: None)
  Receive Date: 20090601
  Receipt Date: 20080516
  Transmission Date: 20091009
  Serious: Yes (Other)
  Sender: FDA-Public Use
  Company Number: US-ASTRAZENECA-2008UW04646

PATIENT
  Age: 596 Month
  Sex: Female
  Weight: 91.6 kg

DRUGS (17)
  1. SEROQUEL [Suspect]
     Indication: ANXIETY
     Route: 048
     Dates: start: 20030101, end: 20050101
  2. SEROQUEL [Suspect]
     Indication: DEPRESSION
     Route: 048
     Dates: start: 20030101, end: 20050101
  3. SEROQUEL [Suspect]
     Indication: SCHIZOPHRENIA
     Route: 048
     Dates: start: 20030101, end: 20050101
  4. SEROQUEL [Suspect]
     Route: 048
  5. SEROQUEL [Suspect]
     Route: 048
  6. SEROQUEL [Suspect]
     Route: 048
  7. LEXAPRO [Concomitant]
     Dosage: 20 MG - 40 MG
     Route: 048
  8. TRAZODONE HCL [Concomitant]
     Dosage: 50 MG -100 MG
     Route: 048
     Dates: start: 20070313
  9. VYTORIN [Concomitant]
     Dosage: 10 MG/ 80 MG
     Route: 048
  10. PREVACID [Concomitant]
     Route: 048
     Dates: start: 20070313
  11. ABILIFY [Concomitant]
     Dosage: 10 MG - 15 MG
     Route: 048
     Dates: start: 20070321
  12. DIPHENHYDRAM [Concomitant]
     Route: 048
     Dates: start: 20041228
  13. LIPITOR [Concomitant]
     Dosage: 20 MG - 40 MG
     Route: 048
  14. CYCLOBENZAPRINE [Concomitant]
     Route: 048
     Dates: start: 20070313
  15. DICLOFENAC SODIUM [Concomitant]
     Route: 048
     Dates: start: 20070313
  16. LEVAQUIN [Concomitant]
     Route: 048
     Dates: start: 20070313
  17. FOSAMAX [Concomitant]
     Route: 048
     Dates: start: 20070330

REACTIONS (3)
  - DIABETES MELLITUS [None]
  - DIABETES MELLITUS INADEQUATE CONTROL [None]
  - DIABETIC RETINOPATHY [None]
